FAERS Safety Report 20278973 (Version 1)
Quarter: 2022Q1

REPORT INFORMATION
  Report Type: Other
  Country: US (occurrence: US)
  Receive Date: 20220103
  Receipt Date: 20220103
  Transmission Date: 20220423
  Serious: Yes (Other)
  Sender: FDA-Public Use
  Company Number: US-BoehringerIngelheim-2021-BI-145118

PATIENT
  Age: 65 Year
  Sex: Female

DRUGS (3)
  1. ALTEPLASE [Suspect]
     Active Substance: ALTEPLASE
     Indication: Pulmonary embolism
     Dosage: IV
     Route: 042
  2. ALTEPLASE [Suspect]
     Active Substance: ALTEPLASE
     Indication: Thrombolysis
  3. ALTEPLASE [Suspect]
     Active Substance: ALTEPLASE
     Indication: Electrocardiogram ST-T segment abnormal

REACTIONS (2)
  - Choroidal detachment [Unknown]
  - Retinal detachment [Unknown]
